FAERS Safety Report 9891656 (Version 1)
Quarter: 2014Q1

REPORT INFORMATION
  Report Type: Spontaneous
  Country: US (occurrence: None)
  Receive Date: 20140210
  Receipt Date: 20140210
  Transmission Date: 20141002
  Serious: Yes (Death)
  Sender: FDA-Public Use
  Company Number: 2014010136

PATIENT
  Age: 53 Year
  Sex: Female

DRUGS (7)
  1. ZOLPIDEM [Suspect]
  2. OXYCODONE (OXYCODONE) [Suspect]
  3. MORPHINE [Suspect]
  4. SKELETAL MUSCLE RELAXANT [Suspect]
  5. CLONAZEPAM (CLONAZEPAM) (CLONAZEPAM) [Suspect]
  6. TRAZODONE (TRAZODONE) [Suspect]
  7. FLUOXETINE (FLUOXETINE) [Suspect]

REACTIONS (2)
  - Exposure via ingestion [None]
  - Drug abuse [None]
